FAERS Safety Report 4866619-9 (Version None)
Quarter: 2005Q4

REPORT INFORMATION
  Report Type: 
  Country: None (occurrence: None)
  Receive Date: 20051221
  Receipt Date: 20051212
  Transmission Date: 20060501
  Serious: Yes (Hospitalization, Other)
  Sender: FDA-Public Use
  Company Number: 2005047967

PATIENT
  Sex: Female

DRUGS (11)
  1. XANAX [Suspect]
     Indication: NERVOUSNESS
     Dosage: 1.5 MG (0.5 MG, 3 IN 1 D), ORAL
     Route: 048
  2. XANAX [Suspect]
  3. XANAX [Suspect]
  4. LOPRESSOR [Concomitant]
  5. LOTENSIN [Concomitant]
  6. HYDROCHLOROTHIAZIDE [Concomitant]
  7. TOPROL-XL [Concomitant]
  8. CLONIDINE [Concomitant]
  9. ALL OTHER THERAPEUTIC PRODUCTS [Concomitant]
  10. LORATADINE [Concomitant]
  11. PREMARIN [Concomitant]

REACTIONS (20)
  - ABDOMINAL DISTENSION [None]
  - ANOREXIA [None]
  - CHOLELITHIASIS [None]
  - CONDITION AGGRAVATED [None]
  - DEPRESSION [None]
  - DRUG INEFFECTIVE [None]
  - HEADACHE [None]
  - HYPERTENSION [None]
  - INCORRECT DOSE ADMINISTERED [None]
  - INSOMNIA [None]
  - MALAISE [None]
  - MULTIPLE ALLERGIES [None]
  - NAUSEA [None]
  - NERVOUSNESS [None]
  - ORAL INTAKE REDUCED [None]
  - PHARMACEUTICAL PRODUCT COMPLAINT [None]
  - THERAPEUTIC RESPONSE UNEXPECTED WITH DRUG SUBSTITUTION [None]
  - THINKING ABNORMAL [None]
  - TREATMENT NONCOMPLIANCE [None]
  - WEIGHT DECREASED [None]
